FAERS Safety Report 6336082-X (Version None)
Quarter: 2009Q3

REPORT INFORMATION
  Report Type: 
  Country: None (occurrence: None)
  Receive Date: 20090901
  Receipt Date: 20090826
  Transmission Date: 20100115
  Serious: No
  Sender: FDA-Public Use
  Company Number: US-JNJFOC-20090808856

PATIENT
  Sex: Female
  Weight: 90.72 kg

DRUGS (3)
  1. FENTANYL TRANSDERMAL SYSTEM [Suspect]
     Indication: ARTHRALGIA
     Route: 062
  2. NORCO [Concomitant]
     Indication: BREAKTHROUGH PAIN
     Dosage: 10/325
     Route: 048
  3. LORTAB [Concomitant]
     Indication: BREAKTHROUGH PAIN
     Dosage: 10/500 1 TABLET EVERY 4-6 HOURS AS NEEDED
     Route: 048

REACTIONS (7)
  - BLOOD CHOLESTEROL INCREASED [None]
  - HYPERTENSION [None]
  - INCOHERENT [None]
  - INSOMNIA [None]
  - MUSCLE SPASMS [None]
  - SOMNOLENCE [None]
  - TREATMENT NONCOMPLIANCE [None]
